FAERS Safety Report 9157363 (Version 2)
Quarter: 2013Q2

REPORT INFORMATION
  Report Type: Spontaneous
  Country: DE (occurrence: DE)
  Receive Date: 20130312
  Receipt Date: 20130409
  Transmission Date: 20140414
  Serious: Yes (Other)
  Sender: FDA-Public Use
  Company Number: DE-ASTELLAS-2013EU001312

PATIENT
  Sex: Male
  Weight: 78 kg

DRUGS (11)
  1. PROGRAF [Suspect]
     Indication: HEART TRANSPLANT
     Dosage: 1.5 MG, BID
     Route: 065
     Dates: start: 1995
  2. ALLOPURINOL [Interacting]
     Indication: HYPERURICAEMIA
     Dosage: 100 MG, UID/QD
     Route: 048
     Dates: start: 20121207
  3. SIROLIMUS [Concomitant]
     Indication: HEART TRANSPLANT
     Dosage: 0.5 MG, UID/QD
     Route: 048
  4. DILZEM [Concomitant]
     Dosage: 90 MG, UNKNOWN/D
     Route: 065
  5. LOCOL [Concomitant]
     Dosage: 40 MG, UID/QD
     Route: 065
  6. XANEF                              /00935901/ [Concomitant]
     Dosage: 5 MG, UNKNOWN/D
     Route: 065
  7. VIGANTOLETTEN [Concomitant]
     Dosage: UNK
     Route: 065
  8. EZETIMIBE [Concomitant]
     Dosage: UNK
     Route: 065
  9. PLAVIX [Concomitant]
     Dosage: 75 DF, UID/QD
     Route: 065
  10. CALCIUM [Concomitant]
     Dosage: 500 DF, BID
     Route: 065
  11. MAGNESIUM [Concomitant]
     Dosage: UNK
     Route: 065

REACTIONS (3)
  - Drug interaction [Recovered/Resolved]
  - Hyperuricaemia [Recovered/Resolved]
  - Drug level decreased [Recovered/Resolved]
